FAERS Safety Report 23568802 (Version 1)
Quarter: 2024Q1

REPORT INFORMATION
  Report Type: Spontaneous
  Country: US (occurrence: US)
  Receive Date: 20240227
  Receipt Date: 20240227
  Transmission Date: 20240410
  Serious: Yes (Hospitalization)
  Sender: FDA-Public Use
  Company Number: US-ORG100014127-2024000017

PATIENT
  Age: 42 Year
  Sex: Female

DRUGS (1)
  1. METYRAPONE [Suspect]
     Active Substance: METYRAPONE
     Indication: Diagnostic procedure
     Dosage: 29.4 MG/KG

REACTIONS (2)
  - Nausea [Unknown]
  - Vomiting [Unknown]
